FAERS Safety Report 5915949-8 (Version None)
Quarter: 2008Q4

REPORT INFORMATION
  Report Type: 
  Country: None (occurrence: None)
  Receive Date: 20081010
  Receipt Date: 20081007
  Transmission Date: 20090506
  Serious: Yes (Hospitalization)
  Sender: FDA-Public Use
  Company Number: US-GILEAD-2008-0018470

PATIENT
  Sex: Female
  Weight: 51.302 kg

DRUGS (6)
  1. LETAIRIS [Suspect]
     Indication: PULMONARY HYPERTENSION
     Route: 048
  2. COUMADIN [Concomitant]
  3. NEXIUM [Concomitant]
  4. REGLAN [Concomitant]
  5. ROXICET [Concomitant]
  6. PLAQUENIL [Concomitant]

REACTIONS (1)
  - CENTRAL LINE INFECTION [None]
